FAERS Safety Report 9357935 (Version 2)
Quarter: 2013Q2

REPORT INFORMATION
  Report Type: Spontaneous
  Country: US (occurrence: US)
  Receive Date: 20130620
  Receipt Date: 20130627
  Transmission Date: 20140414
  Serious: Yes (Hospitalization, Other)
  Sender: FDA-Public Use
  Company Number: US-PFIZER INC-2013184915

PATIENT
  Age: 65 Year
  Sex: Male
  Weight: 104 kg

DRUGS (4)
  1. PROTONIX [Suspect]
     Indication: GASTROOESOPHAGEAL REFLUX DISEASE
     Dosage: 40 MG, 1X/DAY
     Route: 048
  2. DOXAZOSIN [Concomitant]
     Indication: HYPERTENSION
     Dosage: 2 MG, 2X/DAY
  3. COREG [Concomitant]
     Indication: HYPERTENSION
     Dosage: 25 MG, 2X/DAY
  4. HYDRALAZINE [Concomitant]
     Indication: HYPERTENSION
     Dosage: 100 MG, 3X/DAY

REACTIONS (4)
  - Renal impairment [Unknown]
  - Knee arthroplasty [Unknown]
  - Cerebrovascular accident [Recovered/Resolved]
  - Postoperative wound infection [Recovered/Resolved]
